FAERS Safety Report 9542135 (Version 5)
Quarter: 2013Q4

REPORT INFORMATION
  Report Type: Spontaneous
  Country: JP (occurrence: JP)
  Receive Date: 20130923
  Receipt Date: 20131227
  Transmission Date: 20140711
  Serious: No
  Sender: FDA-Public Use
  Company Number: JP-009507513-1309JPN008654

PATIENT
  Age: 64 Year
  Sex: Male

DRUGS (11)
  1. REFLEX [Suspect]
     Indication: DEPRESSION
     Dosage: 15 MG, UNK
     Route: 048
     Dates: start: 20130531, end: 20130614
  2. REFLEX [Suspect]
     Dosage: 7.5 MG, DAILY
     Route: 048
     Dates: start: 20130830, end: 20130830
  3. CILOSTAZOL [Concomitant]
     Indication: PROPHYLAXIS
     Dosage: 200 MG / DAY
     Route: 048
     Dates: start: 20120723
  4. LANSOPRAZOLE [Concomitant]
     Indication: GASTROOESOPHAGEAL REFLUX DISEASE
     Dosage: DAILY DOSAGE: 15 MG
     Route: 048
     Dates: start: 20120723
  5. MELOXICAM [Concomitant]
     Dosage: DAILY DOSAGE: 20 MG
     Route: 048
     Dates: start: 20130531
  6. ESCITALOPRAM OXALATE [Concomitant]
     Indication: DEPRESSION
     Dosage: DAILY DOSE: 10 MG
     Route: 048
     Dates: start: 20130614
  7. REBAMIPIDE [Concomitant]
     Indication: GASTRITIS
     Dosage: DAILY DOSE: 300 MG
     Route: 048
     Dates: start: 20120723
  8. SILODOSIN [Concomitant]
     Indication: BENIGN PROSTATIC HYPERPLASIA
     Dosage: DAILY DOSE: 8 MG,DAILY
     Route: 048
     Dates: start: 20120804
  9. IMIDAFENACIN [Concomitant]
     Indication: HYPERTONIC BLADDER
     Dosage: 0.2 MG,DAILY
     Route: 048
     Dates: start: 20121116
  10. MAGNESIUM OXIDE [Concomitant]
     Indication: CONSTIPATION
     Dosage: 1980 MG,DAILY
     Route: 048
     Dates: start: 20120723
  11. SENNOSIDES [Concomitant]
     Indication: CONSTIPATION
     Dosage: 48 MG,DAILY
     Route: 048
     Dates: start: 20120806

REACTIONS (2)
  - Loss of consciousness [Recovered/Resolved]
  - Somnolence [Recovered/Resolved]
